FAERS Safety Report 16540266 (Version 1)
Quarter: 2019Q3

REPORT INFORMATION
  Report Type: Spontaneous
  Country: US (occurrence: US)
  Receive Date: 20190706
  Receipt Date: 20190706
  Transmission Date: 20191004
  Serious: No
  Sender: FDA-Public Use
  Company Number: None

PATIENT
  Age: 43 Year
  Sex: Female
  Weight: 60.75 kg

DRUGS (1)
  1. METHYLPHENIDATE 54 MG ER OSM TABLET GENERIC FOR CONCERTA [Suspect]
     Active Substance: METHYLPHENIDATE HYDROCHLORIDE
     Indication: ATTENTION DEFICIT/HYPERACTIVITY DISORDER
     Dosage: ?          QUANTITY:1 TABLET(S);?
     Route: 048
     Dates: start: 20190705

REACTIONS (4)
  - Product substitution issue [None]
  - Irritability [None]
  - Insomnia [None]
  - Disturbance in attention [None]

NARRATIVE: CASE EVENT DATE: 20190706
